FAERS Safety Report 10404726 (Version 1)
Quarter: 2014Q3

REPORT INFORMATION
  Report Type: Other
  Country: FR (occurrence: FR)
  Receive Date: 20140824
  Receipt Date: 20140824
  Transmission Date: 20150326
  Serious: Yes (Hospitalization)
  Sender: FDA-Public Use
  Company Number: FR-MYLANLABS-2014M1001739

PATIENT

DRUGS (8)
  1. ATARAX [Suspect]
     Active Substance: HYDROXYZINE\HYDROXYZINE HYDROCHLORIDE
     Indication: AGITATION
     Dosage: 1 DF, UNK
     Route: 048
     Dates: start: 20130704, end: 20130710
  2. IPRATROPIUM 0.5 MG/2ML [Suspect]
     Active Substance: IPRATROPIUM
     Dosage: 1 DF, 4 DAYS
     Route: 055
     Dates: start: 20130628, end: 20130711
  3. LASILIX                            /00032601/ [Suspect]
     Active Substance: FUROSEMIDE
     Indication: HYPERTENSION
     Route: 048
  4. IMOVANE [Suspect]
     Active Substance: ZOPICLONE
     Dosage: 1 DF, QD
     Route: 048
     Dates: start: 20130705
  5. TIAPRIDAL                          /00435702/ [Suspect]
     Active Substance: TIAPRIDE HYDROCHLORIDE
     Indication: AGITATION
     Dosage: UNK
     Dates: start: 20130629, end: 20130703
  6. TERBUTALINE ARROW [Suspect]
     Active Substance: TERBUTALINE
     Dosage: 1 DF, QD
     Route: 055
     Dates: start: 20130628, end: 20130711
  7. NORSET [Suspect]
     Active Substance: MIRTAZAPINE
     Dosage: 15 MG, QD
     Route: 048
     Dates: start: 20130705
  8. TIAPRIDAL                          /00435701/ [Suspect]
     Active Substance: TIAPRIDE HYDROCHLORIDE
     Dosage: 1 DF, QD
     Route: 048
     Dates: start: 20130703, end: 20130704

REACTIONS (2)
  - Confusional state [Not Recovered/Not Resolved]
  - Abnormal behaviour [Not Recovered/Not Resolved]

NARRATIVE: CASE EVENT DATE: 2013
